FAERS Safety Report 11181798 (Version 2)
Quarter: 2015Q3

REPORT INFORMATION
  Report Type: Spontaneous
  Country: IL (occurrence: IL)
  Receive Date: 20150611
  Receipt Date: 20150729
  Transmission Date: 20151125
  Serious: Yes (Life-Threatening, Hospitalization)
  Sender: FDA-Public Use
  Company Number: IL-ARIAD PHARMACEUTICALS, INC-2015IL005067

PATIENT
  Age: 47 Year
  Sex: Male
  Weight: 80 kg

DRUGS (7)
  1. ICLUSIG [Suspect]
     Active Substance: PONATINIB
     Dosage: 30 MG, QD
     Route: 048
     Dates: start: 20150602
  2. DEXACORT [Suspect]
     Active Substance: DEXAMETHASONE SODIUM PHOSPHATE
     Indication: CHRONIC MYELOID LEUKAEMIA
     Dosage: 40 MG, QD
     Route: 042
     Dates: start: 20150528, end: 20150601
  3. ICLUSIG [Suspect]
     Active Substance: PONATINIB
     Indication: CHRONIC MYELOID LEUKAEMIA
     Dosage: 45 MG, QD
     Route: 048
     Dates: start: 20150528
  4. ADRIAMYCIN [Concomitant]
     Active Substance: DOXORUBICIN HYDROCHLORIDE
     Indication: BLAST CRISIS IN MYELOGENOUS LEUKAEMIA
     Dosage: 100 MG, SINGLE
     Route: 042
     Dates: start: 20150601, end: 20150601
  5. ALLOPURINOL. [Concomitant]
     Active Substance: ALLOPURINOL
     Indication: TUMOUR LYSIS SYNDROME
     Dosage: 300 MG, QD
     Route: 048
     Dates: start: 20150527
  6. VINCRISTINE [Concomitant]
     Active Substance: VINCRISTINE
     Indication: BLAST CRISIS IN MYELOGENOUS LEUKAEMIA
     Dosage: 2 MG, SINGLE
     Route: 042
     Dates: start: 20150601, end: 20150601
  7. CYTOXAN [Suspect]
     Active Substance: CYCLOPHOSPHAMIDE
     Indication: CHRONIC MYELOID LEUKAEMIA
     Dosage: 600 MG, BID
     Route: 042
     Dates: start: 20150528, end: 20150531

REACTIONS (1)
  - Tumour lysis syndrome [Recovered/Resolved]

NARRATIVE: CASE EVENT DATE: 20150530
